FAERS Safety Report 5976724-1 (Version None)
Quarter: 2008Q4

REPORT INFORMATION
  Report Type: 
  Country: None (occurrence: None)
  Receive Date: 20081201
  Receipt Date: 20081201
  Transmission Date: 20090506
  Serious: Yes (Other)
  Sender: FDA-Public Use
  Company Number: None

PATIENT
  Sex: Male
  Weight: 147.8726 kg

DRUGS (5)
  1. VALPROIC ACID [Suspect]
     Indication: BIPOLAR DISORDER
     Dosage: 250 MG ONE CAP. 6X/DAY PO FROM REFILL 11/17/08
     Route: 048
     Dates: start: 20081117
  2. PROZAC [Concomitant]
  3. DEXEDRINE [Concomitant]
  4. LOXAPINE [Concomitant]
  5. FAMOTIDINE [Concomitant]

REACTIONS (2)
  - MOOD ALTERED [None]
  - PRODUCT QUALITY ISSUE [None]
